FAERS Safety Report 24274118 (Version 3)
Quarter: 2024Q4

REPORT INFORMATION
  Report Type: Report from Study
  Country: US (occurrence: US)
  Receive Date: 20240902
  Receipt Date: 20241003
  Transmission Date: 20250115
  Serious: Yes (Other)
  Sender: ABBVIE
  Company Number: US-ABBVIE-5898762

PATIENT
  Sex: Male
  Weight: 79 kg

DRUGS (2)
  1. SKYRIZI [Suspect]
     Active Substance: RISANKIZUMAB-RZAA
     Indication: Psoriasis
     Dosage: EVERY 84 DAYS
     Route: 058
     Dates: start: 20211130
  2. GABAPENTIN [Concomitant]
     Active Substance: GABAPENTIN
     Indication: Product used for unknown indication
     Dosage: 4 TO 1 / DAY (RAMPING DOWN
     Route: 048
     Dates: start: 202406, end: 20240802

REACTIONS (4)
  - Intervertebral disc protrusion [Recovered/Resolved]
  - Wound infection [Recovered/Resolved]
  - Postoperative wound infection [Recovered/Resolved]
  - Incision site oedema [Recovering/Resolving]

NARRATIVE: CASE EVENT DATE: 20240101
